FAERS Safety Report 8682054 (Version 2)
Quarter: 2012Q4

REPORT INFORMATION
  Report Type: 
  Country: US (occurrence: US)
  Receive Date: 20120725
  Receipt Date: 20120830
  Transmission Date: 20130627
  Serious: Yes (Other)
  Sender: FDA-Public Use
  Company Number: US-BAYER-2012-073721

PATIENT
  Age: 16 Year
  Sex: Female
  Weight: 46.26 kg

DRUGS (5)
  1. MIRENA [Suspect]
     Indication: CONTRACEPTION
     Dosage: 20 mcg/24hr, CONT
     Route: 015
     Dates: start: 20120504, end: 20120613
  2. CONCERTA [Concomitant]
     Indication: ATTENTION DEFICIT/HYPERACTIVITY DISORDER
     Dosage: 54 mg, QD
  3. ZOLOFT [Concomitant]
     Indication: DEPRESSION
     Dosage: 50 mg, QD
  4. VENTOLIN [Concomitant]
     Indication: ASTHMA
     Dosage: 2 puff(s), PRN
     Route: 045
  5. FLOVENT [Concomitant]
     Indication: ASTHMA
     Dosage: 1 puff(s), QD
     Route: 045

REACTIONS (3)
  - Genital haemorrhage [None]
  - Abdominal pain lower [None]
  - Device expulsion [Recovered/Resolved]
